FAERS Safety Report 23733451 (Version 1)
Quarter: 2024Q2

REPORT INFORMATION
  Report Type: Spontaneous
  Country: US (occurrence: US)
  Receive Date: 20240411
  Receipt Date: 20240411
  Transmission Date: 20240716
  Serious: No
  Sender: FDA-Public Use
  Company Number: US-FreseniusKabi-FK202405815

PATIENT
  Age: 32 Year
  Sex: Female

DRUGS (1)
  1. DILAUDID [Suspect]
     Active Substance: HYDROMORPHONE HYDROCHLORIDE
     Indication: Pain
     Dosage: DATE OF ADMINISTRATION BY NURSE 22-MAR-2024?FORM OF ADMIN: INJECTION?ROUTE : INTRAVENOUS PUSH?HYDROM

REACTIONS (1)
  - Skin laceration [Recovering/Resolving]

NARRATIVE: CASE EVENT DATE: 20240322
